FAERS Safety Report 12005624 (Version 1)
Quarter: 2016Q1

REPORT INFORMATION
  Report Type: Report from Study
  Country: US (occurrence: US)
  Receive Date: 20160204
  Receipt Date: 20160204
  Transmission Date: 20160526
  Serious: No
  Sender: FDA-Public Use
  Company Number: US-ABBVIE-15K-163-1426518-00

PATIENT
  Age: 17 Year
  Sex: Male

DRUGS (3)
  1. HUMIRA [Suspect]
     Active Substance: ADALIMUMAB
     Indication: CROHN^S DISEASE
     Route: 065
     Dates: start: 20150605, end: 20150605
  2. HUMIRA [Suspect]
     Active Substance: ADALIMUMAB
     Route: 065
     Dates: start: 20150629, end: 20150629
  3. HUMIRA [Suspect]
     Active Substance: ADALIMUMAB
     Route: 065
     Dates: start: 20150708, end: 20150709

REACTIONS (10)
  - Amnesia [Unknown]
  - Palpitations [Recovered/Resolved]
  - Hypoaesthesia oral [Unknown]
  - Anxiety [Unknown]
  - Fear of death [Unknown]
  - Anxiety [Recovered/Resolved]
  - Feeling abnormal [Unknown]
  - Palpitations [Unknown]
  - Paraesthesia [Unknown]
  - Paraesthesia [Recovered/Resolved]

NARRATIVE: CASE EVENT DATE: 20150629
